FAERS Safety Report 7784939-5 (Version None)
Quarter: 2011Q3

REPORT INFORMATION
  Report Type: 
  Country: None (occurrence: None)
  Receive Date: 20110928
  Receipt Date: 20110919
  Transmission Date: 20111222
  Serious: Yes (Other)
  Sender: FDA-Public Use
  Company Number: US-BAYER-2011-087987

PATIENT
  Age: 19 Year
  Sex: Female

DRUGS (1)
  1. MIRENA [Suspect]
     Indication: CONTRACEPTION
     Dosage: 20 MCG/24HR, CONT
     Route: 015
     Dates: start: 20110803, end: 20110916

REACTIONS (4)
  - ABDOMINAL DISCOMFORT [None]
  - UTERINE PERFORATION [None]
  - ABDOMINAL PAIN LOWER [None]
  - DEVICE DISLOCATION [None]
